FAERS Safety Report 6732176-5 (Version None)
Quarter: 2010Q2

REPORT INFORMATION
  Report Type: 
  Country: None (occurrence: None)
  Receive Date: 20100519
  Receipt Date: 20100511
  Transmission Date: 20101027
  Serious: Yes (Hospitalization)
  Sender: FDA-Public Use
  Company Number: A0794168A

PATIENT
  Age: 50 Year
  Sex: Male
  Weight: 118.2 kg

DRUGS (1)
  1. AVANDIA [Suspect]
     Dosage: 8MG PER DAY
     Route: 048
     Dates: start: 20000801, end: 20070401

REACTIONS (4)
  - ADVERSE DRUG REACTION [None]
  - CARDIAC DISORDER [None]
  - MYOCARDIAL INFARCTION [None]
  - SKIN DISORDER [None]
